FAERS Safety Report 18428111 (Version 1)
Quarter: 2020Q4

REPORT INFORMATION
  Report Type: Spontaneous
  Country: GB (occurrence: GB)
  Receive Date: 20201026
  Receipt Date: 20201026
  Transmission Date: 20210114
  Serious: Yes (Disabling, Other)
  Sender: FDA-Public Use
  Company Number: GB-MYLANLABS-2020M1089010

PATIENT
  Age: 29 Year
  Sex: Male
  Weight: 86 kg

DRUGS (1)
  1. FINASTERIDE. [Suspect]
     Active Substance: FINASTERIDE
     Indication: ALOPECIA
     Dosage: 1 MILLIGRAM, QD
     Route: 048
     Dates: start: 20200227, end: 20200318

REACTIONS (10)
  - Semen discolouration [Not Recovered/Not Resolved]
  - Genital paraesthesia [Not Recovered/Not Resolved]
  - Loss of libido [Not Recovered/Not Resolved]
  - Penile size reduced [Not Recovered/Not Resolved]
  - Erectile dysfunction [Not Recovered/Not Resolved]
  - Semen viscosity decreased [Not Recovered/Not Resolved]
  - Orgasmic sensation decreased [Not Recovered/Not Resolved]
  - Nipple pain [Recovered/Resolved]
  - Depression suicidal [Not Recovered/Not Resolved]
  - Organic erectile dysfunction [Not Recovered/Not Resolved]

NARRATIVE: CASE EVENT DATE: 20200318
